FAERS Safety Report 9271061 (Version 1)
Quarter: 2013Q2

REPORT INFORMATION
  Report Type: Spontaneous
  Country: CN (occurrence: CN)
  Receive Date: 20130506
  Receipt Date: 20130506
  Transmission Date: 20140414
  Serious: Yes (Death, Other)
  Sender: FDA-Public Use
  Company Number: CN-JNJFOC-20130500597

PATIENT
  Sex: 0

DRUGS (19)
  1. DOXORUBICIN [Suspect]
     Indication: PLASMA CELL MYELOMA
     Dosage: ON DAYS 4 AND 18
     Route: 042
  2. DOXORUBICIN [Suspect]
     Indication: PLASMA CELL MYELOMA
     Dosage: ON DAYS 4 AND 18
     Route: 042
  3. BORTEZOMIB [Suspect]
     Indication: PLASMA CELL MYELOMA
     Dosage: DAYS 1, 8, 15, AND 22 OF EACH TREATMENT CYCLE
     Route: 065
  4. BORTEZOMIB [Suspect]
     Indication: PLASMA CELL MYELOMA
     Dosage: ON DAYS 1,4, 8, AND 11 OF EACH TREATMENT CYCLE
     Route: 065
  5. BORTEZOMIB [Suspect]
     Indication: PLASMA CELL MYELOMA
     Dosage: DAYS 1, 8, 15, AND 22 OF EACH TREATMENT CYCLE
     Route: 065
  6. BORTEZOMIB [Suspect]
     Indication: PLASMA CELL MYELOMA
     Dosage: ON DAYS 1,4, 8, AND 11 OF EACH TREATMENT CYCLE
     Route: 065
  7. DEXAMETHASONE [Suspect]
     Indication: PLASMA CELL MYELOMA
     Dosage: ON DAYS 1-4
     Route: 042
  8. DEXAMETHASONE [Suspect]
     Indication: PLASMA CELL MYELOMA
     Dosage: ON DAYS 1-4
     Route: 042
  9. DEXAMETHASONE [Suspect]
     Indication: PLASMA CELL MYELOMA
     Dosage: ON DAYS 1-4
     Route: 042
  10. DEXAMETHASONE [Suspect]
     Indication: PLASMA CELL MYELOMA
     Dosage: ON DAYS 1-4
     Route: 042
  11. ADRIAMYCIN [Suspect]
     Indication: PLASMA CELL MYELOMA
     Dosage: ON THE FOURTH DAY OF EACH TREATMENT CYCLE
     Route: 065
  12. ADRIAMYCIN [Suspect]
     Indication: PLASMA CELL MYELOMA
     Dosage: ON THE FOURTH DAY OF EACH TREATMENT CYCLE
     Route: 065
  13. CYCLOPHOSPHAMIDE [Suspect]
     Indication: PLASMA CELL MYELOMA
     Dosage: 3.0-5.0 G/M2 ON DAY 1
     Route: 065
  14. CYCLOPHOSPHAMIDE [Suspect]
     Indication: PLASMA CELL MYELOMA
     Dosage: 3.0-5.0 G/M2 ON DAY 1
     Route: 065
  15. G-CSF [Suspect]
     Indication: PLASMA CELL MYELOMA
     Dosage: ON DAY 2
     Route: 065
  16. G-CSF [Suspect]
     Indication: PLASMA CELL MYELOMA
     Dosage: ON DAY 2
     Route: 065
  17. MELPHALAN [Suspect]
     Indication: PLASMA CELL MYELOMA
     Route: 065
  18. MELPHALAN [Suspect]
     Indication: PLASMA CELL MYELOMA
     Route: 065
  19. THALIDOMIDE [Concomitant]
     Indication: PROPHYLAXIS
     Route: 065

REACTIONS (18)
  - Plasma cell myeloma [Fatal]
  - Plasma cell myeloma [Fatal]
  - Cytomegalovirus infection [Recovered/Resolved]
  - Lung infection [Recovered/Resolved]
  - Herpes zoster [Recovered/Resolved]
  - Leukopenia [Recovered/Resolved]
  - Thrombocytopenia [Recovered/Resolved]
  - Neutropenia [Recovered/Resolved]
  - Infection [Recovered/Resolved]
  - Neuropathy peripheral [Recovered/Resolved]
  - Gingival ulceration [Recovered/Resolved]
  - Nausea [Recovered/Resolved]
  - Vomiting [Recovered/Resolved]
  - Fatigue [Recovered/Resolved]
  - Pyrexia [Recovered/Resolved]
  - Diarrhoea [Recovered/Resolved]
  - Abdominal pain [Recovered/Resolved]
  - Decreased appetite [Recovered/Resolved]
